FAERS Safety Report 7106040-6 (Version None)
Quarter: 2010Q4

REPORT INFORMATION
  Report Type: 
  Country: None (occurrence: None)
  Receive Date: 20101018
  Receipt Date: 20090901
  Transmission Date: 20110411
  Serious: No
  Sender: FDA-Public Use
  Company Number: US-WYE-H10815509

PATIENT
  Age: 49 Year
  Sex: Female

DRUGS (1)
  1. PREMARIN [Suspect]
     Indication: HORMONE REPLACEMENT THERAPY
     Dosage: VARIOUS DOSAGES, ORAL
     Route: 048
     Dates: start: 19950101, end: 19960101

REACTIONS (9)
  - BREAST ENLARGEMENT [None]
  - CRYING [None]
  - DEPRESSION [None]
  - DRUG INEFFECTIVE [None]
  - HYPERSENSITIVITY [None]
  - OVERDOSE [None]
  - PRURITUS [None]
  - SCAR [None]
  - URTICARIA [None]
